FAERS Safety Report 24341869 (Version 4)
Quarter: 2025Q1

REPORT INFORMATION
  Report Type: Spontaneous
  Country: FR (occurrence: FR)
  Receive Date: 20240920
  Receipt Date: 20250203
  Transmission Date: 20250409
  Serious: Yes (Hospitalization)
  Sender: RHYTHM PHARMACEUTICALS, INC.
  Company Number: FR-Rhythm Pharmaceuticals, Inc.-2024RHM000453

PATIENT
  Age: 34 Year
  Sex: Male
  Weight: 136 kg

DRUGS (24)
  1. IMCIVREE [Suspect]
     Active Substance: SETMELANOTIDE
     Indication: Obesity
     Route: 065
     Dates: start: 20240719
  2. IMCIVREE [Suspect]
     Active Substance: SETMELANOTIDE
     Route: 065
     Dates: start: 20240724
  3. IMCIVREE [Suspect]
     Active Substance: SETMELANOTIDE
     Route: 065
     Dates: end: 20240807
  4. IMCIVREE [Suspect]
     Active Substance: SETMELANOTIDE
     Route: 065
     Dates: start: 20240814
  5. IMCIVREE [Suspect]
     Active Substance: SETMELANOTIDE
     Route: 065
  6. IMCIVREE [Suspect]
     Active Substance: SETMELANOTIDE
     Dosage: AT M3 VISIT
     Route: 065
     Dates: start: 20241015
  7. IMCIVREE [Suspect]
     Active Substance: SETMELANOTIDE
     Dosage: AT M6 VISIT
     Route: 065
     Dates: start: 20250123
  8. DESMOPRESSIN ACETATE [Suspect]
     Active Substance: DESMOPRESSIN ACETATE
     Indication: Diabetes insipidus
     Dosage: MENTIONED AS CONTRIBUTOR OF THE ADVERSE EVENT
     Route: 065
  9. WEGOVY [Suspect]
     Active Substance: SEMAGLUTIDE
     Indication: Obesity
     Dosage: MENTIONED AS CONTRIBUTOR OF THE ADVERSE EVENT
     Route: 058
     Dates: end: 20240807
  10. SEMAGLUTIDE [Concomitant]
     Active Substance: SEMAGLUTIDE
     Indication: Product used for unknown indication
     Route: 065
     Dates: start: 20211101
  11. LEVOTHYROXINE [Concomitant]
     Active Substance: LEVOTHYROXINE
     Indication: Hypopituitarism
     Route: 065
  12. LEVOTHYROXINE [Concomitant]
     Active Substance: LEVOTHYROXINE
     Dosage: 1-0-0
     Route: 048
     Dates: start: 202410
  13. HYDROCORTISONE [Concomitant]
     Active Substance: HYDROCORTISONE
     Indication: Hypopituitarism
     Dosage: 2 TABLETS ON WAKING, 1 TABLET DURING LUNCH
     Route: 048
  14. HYDROCORTISONE [Concomitant]
     Active Substance: HYDROCORTISONE
     Dosage: 2 TABLETS ON WAKING, 1 TABLET DURING LUNCH
     Route: 048
  15. HYDROCORTISONE [Concomitant]
     Active Substance: HYDROCORTISONE
     Dosage: 40 MG IN THE MORNING AND 20 MG AT NOON
     Route: 048
     Dates: start: 202407
  16. HYDROCORTISONE [Concomitant]
     Active Substance: HYDROCORTISONE
     Dosage: 40 MG IN THE MORNING AND 20 MG AT NOON
     Route: 048
     Dates: start: 202407
  17. HYDROCORTISONE [Concomitant]
     Active Substance: HYDROCORTISONE
     Dosage: 2 TABLETS ON WAKING, 1 TABLET DURING LUNCH
     Route: 048
  18. HYDROCORTISONE [Concomitant]
     Active Substance: HYDROCORTISONE
     Dosage: 2 TABLETS ON WAKING, 1 TABLET DURING LUNCH
     Route: 048
  19. TESTOSTERONE [Concomitant]
     Active Substance: TESTOSTERONE
     Indication: Hypopituitarism
     Route: 030
  20. CHOLECALCIFEROL [Concomitant]
     Active Substance: CHOLECALCIFEROL
     Indication: Vitamin D deficiency
     Route: 065
  21. Topimarate [Concomitant]
     Indication: Impulsive behaviour
     Dosage: 1 IN THE MORNING; 1 IN THE EVENING
     Route: 048
  22. Topimarate [Concomitant]
     Indication: Epilepsy
  23. ALBUTEROL [Concomitant]
     Active Substance: ALBUTEROL
     Indication: Asthma
     Route: 065
  24. SOMATROPIN [Concomitant]
     Active Substance: SOMATROPIN
     Indication: Hypopituitarism
     Route: 058

REACTIONS (7)
  - Adrenocorticotropic hormone deficiency [Recovered/Resolved]
  - Abnormal loss of weight [Not Recovered/Not Resolved]
  - Off label use [Not Recovered/Not Resolved]
  - Hypotension [Unknown]
  - Hyponatraemia [Unknown]
  - Asthenia [Not Recovered/Not Resolved]
  - Nausea [Not Recovered/Not Resolved]

NARRATIVE: CASE EVENT DATE: 20240724
